FAERS Safety Report 9230302 (Version 1)
Quarter: 2013Q2

REPORT INFORMATION
  Report Type: Spontaneous
  Country: US (occurrence: US)
  Receive Date: 20130415
  Receipt Date: 20130415
  Transmission Date: 20140414
  Serious: Yes (Hospitalization)
  Sender: FDA-Public Use
  Company Number: PHEH2013US005958

PATIENT
  Sex: Female

DRUGS (1)
  1. TOBI [Suspect]
     Indication: PSEUDOMONAS BRONCHITIS
     Dosage: 300 UKN, BID
     Dates: start: 20130208, end: 20130326

REACTIONS (2)
  - Chronic obstructive pulmonary disease [Unknown]
  - Malaise [Unknown]
